FAERS Safety Report 12094178 (Version 1)
Quarter: 2016Q1

REPORT INFORMATION
  Report Type: Spontaneous
  Country: US (occurrence: US)
  Receive Date: 20160219
  Receipt Date: 20160219
  Transmission Date: 20160526
  Serious: No
  Sender: FDA-Public Use
  Company Number: US-009507513-1602USA005699

PATIENT
  Age: 46 Year
  Sex: Female

DRUGS (16)
  1. DEXAMETHASONE. [Suspect]
     Active Substance: DEXAMETHASONE
     Indication: METASTASES TO CENTRAL NERVOUS SYSTEM
  2. TAMOXIFEN [Concomitant]
     Active Substance: TAMOXIFEN
     Indication: METASTASES TO BREAST
  3. LEUPROLIDE [Concomitant]
     Active Substance: LEUPROLIDE
     Indication: METASTASES TO LYMPH NODES
  4. LEUPROLIDE [Concomitant]
     Active Substance: LEUPROLIDE
     Indication: METASTASES TO BREAST
  5. DEXAMETHASONE. [Suspect]
     Active Substance: DEXAMETHASONE
     Indication: METASTASES TO BONE
  6. TAMOXIFEN [Concomitant]
     Active Substance: TAMOXIFEN
     Indication: METASTASES TO CENTRAL NERVOUS SYSTEM
  7. TAMOXIFEN [Concomitant]
     Active Substance: TAMOXIFEN
     Indication: METASTASES TO LIVER
  8. INSULIN [Concomitant]
     Active Substance: INSULIN NOS
     Indication: DIABETES MELLITUS
  9. DEXAMETHASONE. [Suspect]
     Active Substance: DEXAMETHASONE
     Indication: BREAST CANCER
     Dosage: UNKNOWN
     Route: 048
  10. DEXAMETHASONE. [Suspect]
     Active Substance: DEXAMETHASONE
     Indication: METASTASES TO LYMPH NODES
  11. TAMOXIFEN [Concomitant]
     Active Substance: TAMOXIFEN
     Indication: METASTASES TO LYMPH NODES
  12. DEXAMETHASONE. [Suspect]
     Active Substance: DEXAMETHASONE
     Indication: METASTASES TO LIVER
  13. TAMOXIFEN [Concomitant]
     Active Substance: TAMOXIFEN
     Indication: METASTASES TO BONE
  14. LEUPROLIDE [Concomitant]
     Active Substance: LEUPROLIDE
     Indication: METASTASES TO CENTRAL NERVOUS SYSTEM
  15. LEUPROLIDE [Concomitant]
     Active Substance: LEUPROLIDE
     Indication: METASTASES TO LIVER
  16. LEUPROLIDE [Concomitant]
     Active Substance: LEUPROLIDE
     Indication: METASTASES TO BONE

REACTIONS (1)
  - Lymphopenia [Unknown]
